FAERS Safety Report 14304569 (Version 1)
Quarter: 2017Q4

REPORT INFORMATION
  Report Type: Spontaneous
  Country: JP (occurrence: JP)
  Receive Date: 20171219
  Receipt Date: 20171219
  Transmission Date: 20180321
  Serious: Yes (Life-Threatening)
  Sender: FDA-Public Use
  Company Number: JP-OTSUKA-03100-JPN-07-0160

PATIENT
  Age: 52 Year
  Sex: Female
  Weight: 57.6 kg

DRUGS (10)
  1. RISPERDAL [Suspect]
     Active Substance: RISPERIDONE
     Dosage: 12 ML, QD
     Route: 048
     Dates: start: 20061227, end: 20070201
  2. RISPERDAL [Suspect]
     Active Substance: RISPERIDONE
     Dosage: 10 ML, QD
     Route: 048
     Dates: start: 20061220, end: 20061226
  3. ABILIFY [Suspect]
     Active Substance: ARIPIPRAZOLE
     Dosage: 9 MG, QD
     Route: 048
     Dates: start: 20070124, end: 20070216
  4. U-PAN [Concomitant]
     Active Substance: LORAZEPAM
     Dosage: 0.5 MG, TID
     Route: 048
     Dates: start: 20060905, end: 20070226
  5. LORAZEPAM. [Concomitant]
     Active Substance: LORAZEPAM
     Indication: SCHIZOPHRENIA
     Dosage: 1.5 MG, UNK
     Route: 048
     Dates: start: 20060905, end: 20070226
  6. FLUNITRAZEPAM [Concomitant]
     Active Substance: FLUNITRAZEPAM
     Indication: SCHIZOPHRENIA
     Dosage: 2 MG, UNK
     Route: 048
     Dates: start: 20060901, end: 20070226
  7. RISPERDAL [Suspect]
     Active Substance: RISPERIDONE
     Dosage: 4 ML, QD
     Route: 048
     Dates: start: 20070202, end: 20070208
  8. RISPERIDONE. [Suspect]
     Active Substance: RISPERIDONE
     Indication: SCHIZOPHRENIA
     Dosage: START 4ML/D 13-DEC-07;INC 10 ML/D 20-DEC-07;INC 12ML/D 27-DEC-07;DEC 4ML/D 02-FEB-07; D/C 8-FEB-07.
     Route: 048
     Dates: start: 20061213, end: 20070208
  9. FLUNITRAZEPAM [Concomitant]
     Active Substance: FLUNITRAZEPAM
     Dosage: 2 MG, QD
     Route: 048
     Dates: start: 20060901, end: 20070226
  10. RISPERDAL [Suspect]
     Active Substance: RISPERIDONE
     Dosage: 4 ML, QD
     Route: 048
     Dates: start: 20061213, end: 20061219

REACTIONS (2)
  - Upper respiratory tract inflammation [Recovered/Resolved]
  - Dystonia [Recovered/Resolved]

NARRATIVE: CASE EVENT DATE: 20070202
